FAERS Safety Report 15723446 (Version 1)
Quarter: 2018Q4

REPORT INFORMATION
  Report Type: Spontaneous
  Country: US (occurrence: US)
  Receive Date: 20181214
  Receipt Date: 20181214
  Transmission Date: 20190205
  Serious: Yes (Hospitalization)
  Sender: FDA-Public Use
  Company Number: None

PATIENT
  Sex: Male

DRUGS (17)
  1. AZITHROMYCIN ANHYDROUS. [Concomitant]
     Active Substance: AZITHROMYCIN ANHYDROUS
  2. IMIQUIMOD. [Concomitant]
     Active Substance: IMIQUIMOD
  3. TRAZODONE [Concomitant]
     Active Substance: TRAZODONE HYDROCHLORIDE
  4. FLUTICASONE. [Concomitant]
     Active Substance: FLUTICASONE
  5. PREDNISONE. [Concomitant]
     Active Substance: PREDNISONE
  6. NAPROXEN. [Concomitant]
     Active Substance: NAPROXEN
  7. NICOTINE. [Concomitant]
     Active Substance: NICOTINE
  8. LYRICA [Concomitant]
     Active Substance: PREGABALIN
  9. ESBRIET [Suspect]
     Active Substance: PIRFENIDONE
     Indication: IDIOPATHIC PULMONARY FIBROSIS
     Route: 048
     Dates: start: 20170708
  10. TIZANIDINE. [Concomitant]
     Active Substance: TIZANIDINE
  11. PANTOPRAZOLE [Concomitant]
     Active Substance: PANTOPRAZOLE
  12. TRIAMCINOLONE [Concomitant]
     Active Substance: TRIAMCINOLONE
  13. KETOCONAZOLE. [Concomitant]
     Active Substance: KETOCONAZOLE
  14. BENZONATATE. [Concomitant]
     Active Substance: BENZONATATE
  15. TRAMADOL. [Concomitant]
     Active Substance: TRAMADOL
  16. ZOLPIDEM [Concomitant]
     Active Substance: ZOLPIDEM\ZOLPIDEM TARTRATE
  17. METHYLPRED [Concomitant]
     Active Substance: METHYLPREDNISOLONE

REACTIONS (1)
  - Abdominal discomfort [None]
